FAERS Safety Report 16809092 (Version 1)
Quarter: 2019Q3

REPORT INFORMATION
  Report Type: Spontaneous
  Country: PT (occurrence: PT)
  Receive Date: 20190916
  Receipt Date: 20190916
  Transmission Date: 20191005
  Serious: Yes (Hospitalization, Other)
  Sender: FDA-Public Use
  Company Number: PT-MYLANLABS-2019M1084944

PATIENT
  Age: 29 Year
  Sex: Male

DRUGS (3)
  1. DOLUTEGRAVIR [Suspect]
     Active Substance: DOLUTEGRAVIR
     Indication: ACQUIRED IMMUNODEFICIENCY SYNDROME
     Dosage: UNK
     Route: 065
  2. EMTRICITABINE/TENOFOVIR DISOPROXIL FUMARATE [Suspect]
     Active Substance: EMTRICITABINE\TENOFOVIR DISOPROXIL FUMARATE
     Indication: ACQUIRED IMMUNODEFICIENCY SYNDROME
     Dosage: UNK
     Route: 065
  3. DOXORUBICIN [Concomitant]
     Active Substance: DOXORUBICIN
     Indication: KAPOSI^S SARCOMA
     Dosage: UNK
     Route: 065

REACTIONS (11)
  - Hypoalbuminaemia [Unknown]
  - Cachexia [Unknown]
  - Pericardial effusion [Unknown]
  - Lymphoedema [Unknown]
  - Chylothorax [Unknown]
  - Immune reconstitution inflammatory syndrome [Unknown]
  - Abdominal distension [Unknown]
  - Ascites [Unknown]
  - Malnutrition [Unknown]
  - Condition aggravated [Recovering/Resolving]
  - Kaposi^s sarcoma [Recovering/Resolving]
